FAERS Safety Report 7454321-9 (Version None)
Quarter: 2011Q2

REPORT INFORMATION
  Report Type: 
  Country: None (occurrence: None)
  Receive Date: 20110503
  Receipt Date: 20110404
  Transmission Date: 20111010
  Serious: Yes (Hospitalization, Other)
  Sender: FDA-Public Use
  Company Number: US-BAYER-201039759NA

PATIENT
  Age: 28 Year
  Sex: Female
  Weight: 90.703 kg

DRUGS (9)
  1. ZANTAC [Concomitant]
  2. DROSPIRENONE AND ETHINYL ESTRADIOL [Suspect]
     Indication: CONTRACEPTION
     Dosage: UNK
     Route: 048
     Dates: start: 20061101, end: 20091101
  3. MYLANTA [ALUMINIUM HYDROXIDE GEL, DRIED,MAGNESIUM HYDROXIDE,SIMETICONE [Concomitant]
  4. ACIPHEX [Concomitant]
     Dosage: UNK UNK, PRN
  5. CIPRO [Concomitant]
     Dosage: 500 MG, UNK
     Route: 048
     Dates: start: 20090112
  6. FLAGYL [Concomitant]
     Dosage: 500 MG, UNK
     Route: 048
     Dates: start: 20090112
  7. YASMIN [Suspect]
     Indication: CONTRACEPTION
     Dosage: UNK
     Dates: start: 20061101, end: 20091101
  8. ADVIL LIQUI-GELS [Concomitant]
  9. DONNATAL [Concomitant]

REACTIONS (4)
  - GALLBLADDER DISORDER [None]
  - PAIN [None]
  - CHOLECYSTITIS ACUTE [None]
  - CHOLELITHIASIS [None]
